FAERS Safety Report 4777958-4 (Version None)
Quarter: 2005Q3

REPORT INFORMATION
  Report Type: 
  Country: None (occurrence: None)
  Receive Date: 20050923
  Receipt Date: 20050908
  Transmission Date: 20060218
  Serious: Yes (Hospitalization, Other)
  Sender: FDA-Public Use
  Company Number: 2005S1008810

PATIENT
  Age: 61 Year
  Sex: Male
  Weight: 84.8226 kg

DRUGS (2)
  1. ANGIOMAX [Suspect]
     Dosage: 1 MG; IVBOL ; 0.25 MG; IVBOL
     Route: 040
     Dates: start: 20050502, end: 20050502
  2. FUROSEMIDE [Suspect]
     Indication: OEDEMA
     Dosage: 20 MG; QD; PO
     Route: 048
     Dates: start: 20010101, end: 20050513

REACTIONS (9)
  - ACUTE CORONARY SYNDROME [None]
  - DIARRHOEA [None]
  - DIZZINESS POSTURAL [None]
  - DYSPNOEA [None]
  - DYSURIA [None]
  - HYPONATRAEMIA [None]
  - METABOLIC ACIDOSIS [None]
  - POLYDIPSIA [None]
  - RENAL FAILURE ACUTE [None]
